FAERS Safety Report 8843343 (Version 2)
Quarter: 2012Q4

REPORT INFORMATION
  Report Type: 
  Country: TR (occurrence: TR)
  Receive Date: 20121016
  Receipt Date: 20121113
  Transmission Date: 20130627
  Serious: Yes (Death, Other)
  Sender: FDA-Public Use
  Company Number: TR-WATSON-2012-17710

PATIENT
  Age: 51 Year
  Sex: Female

DRUGS (4)
  1. BUPROPION HYDROCHLORIDE (WATSON LABORATORIES) [Suspect]
     Indication: DEPRESSION
     Dosage: 150 mg, daily
     Route: 065
  2. BUPROPION HYDROCHLORIDE (WATSON LABORATORIES) [Suspect]
     Dosage: 300 mg, daily
     Route: 065
  3. ESCITALOPRAM [Concomitant]
     Indication: DEPRESSION
     Dosage: UNK
     Route: 065
  4. DULOXETINE [Concomitant]
     Indication: DEPRESSION
     Dosage: UNK
     Route: 065

REACTIONS (2)
  - Hallucination, visual [Recovered/Resolved]
  - Major depression [Recovered/Resolved]
